FAERS Safety Report 20535120 (Version 2)
Quarter: 2022Q1

REPORT INFORMATION
  Report Type: Report from Study
  Country: PT (occurrence: PT)
  Receive Date: 20220302
  Receipt Date: 20220320
  Transmission Date: 20220423
  Serious: Yes (Other)
  Sender: FDA-Public Use
  Company Number: PT-ABBVIE-22K-130-4242632-00

PATIENT
  Age: 23 Year
  Sex: Female

DRUGS (5)
  1. HUMIRA [Suspect]
     Active Substance: ADALIMUMAB
     Indication: Crohn^s disease
     Dosage: LOADING DOSE 1
     Route: 058
     Dates: start: 20200814, end: 20200814
  2. HUMIRA [Suspect]
     Active Substance: ADALIMUMAB
     Dosage: LOADING DOSE 2
     Route: 058
     Dates: start: 20200828, end: 20200828
  3. HUMIRA [Suspect]
     Active Substance: ADALIMUMAB
     Route: 058
     Dates: start: 20200911, end: 202201
  4. OLANZAPINE [Concomitant]
     Active Substance: OLANZAPINE
     Indication: Depression
     Dosage: DAILY
     Route: 048
     Dates: start: 20210628
  5. COVID-19 VACCINE [Concomitant]
     Indication: COVID-19 immunisation
     Dosage: THIRD DOSE
     Route: 030
     Dates: start: 202112, end: 202112

REACTIONS (9)
  - Lung disorder [Unknown]
  - Beta haemolytic streptococcal infection [Unknown]
  - Pneumonia [Unknown]
  - Intentional product misuse [Unknown]
  - Eosinophilia [Not Recovered/Not Resolved]
  - Wheezing [Recovered/Resolved]
  - Cough [Recovering/Resolving]
  - COVID-19 [Recovered/Resolved]
  - Dyspnoea [Recovering/Resolving]

NARRATIVE: CASE EVENT DATE: 20211101
